FAERS Safety Report 7587004-5 (Version None)
Quarter: 2011Q3

REPORT INFORMATION
  Report Type: 
  Country: None (occurrence: None)
  Receive Date: 20110701
  Receipt Date: 20110622
  Transmission Date: 20111222
  Serious: Yes (Hospitalization)
  Sender: FDA-Public Use
  Company Number: PHHY2011US56727

PATIENT
  Age: 32 Year
  Sex: Male
  Weight: 23 kg

DRUGS (15)
  1. CLONAZEPAM [Concomitant]
     Indication: ANXIETY
     Dosage: UNK
  2. PREGABALIN [Concomitant]
     Dosage: UNK
  3. LYRICA [Concomitant]
     Dosage: UNK
  4. CLONEX [Concomitant]
     Dosage: UNK
  5. GILENYA [Suspect]
     Indication: VISION BLURRED
     Dosage: UNK
  6. ISOSORBIDE MONONITRATE [Concomitant]
     Dosage: UNK
  7. COPAXONE [Concomitant]
     Dosage: UNK
  8. GABAPENTIN [Concomitant]
     Dosage: 200 MG, DAILY
     Dates: start: 20110501, end: 20110503
  9. INTERFERON BETA-1B [Suspect]
     Dosage: UNK
     Route: 058
  10. DULOXETINE HYDROCHLORIDE [Concomitant]
     Dosage: UNK
  11. CYMBALTA [Concomitant]
     Dosage: UNK
  12. BACLOFEN [Concomitant]
     Dosage: UNK
  13. INTERFERON BETA-1A [Concomitant]
     Dosage: UNK
     Route: 030
  14. ITRACONAZOLE [Concomitant]
     Dosage: UNK
  15. DOCUSATE [Concomitant]

REACTIONS (1)
  - TYPE 2 DIABETES MELLITUS [None]
